FAERS Safety Report 17388675 (Version 1)
Quarter: 2020Q1

REPORT INFORMATION
  Report Type: Spontaneous
  Country: US (occurrence: US)
  Receive Date: 20200123
  Receipt Date: 20200123
  Transmission Date: 20200409
  Serious: No
  Sender: FDA-Public Use
  Company Number: None

PATIENT
  Age: 43 Year
  Sex: Male

DRUGS (1)
  1. ZARXIO [Suspect]
     Active Substance: FILGRASTIM-SNDZ
     Indication: STEM CELL TRANSPLANT
     Dosage: ?          OTHER STRENGTH:480/0.8 UG/ML;?
     Route: 058
     Dates: start: 202001

REACTIONS (1)
  - Product use issue [None]

NARRATIVE: CASE EVENT DATE: 20200123
